FAERS Safety Report 12237095 (Version 1)
Quarter: 2016Q2

REPORT INFORMATION
  Report Type: Spontaneous
  Country: US (occurrence: None)
  Receive Date: 20160404
  Receipt Date: 20160404
  Transmission Date: 20160815
  Serious: Yes (Hospitalization)
  Sender: FDA-Public Use
  Company Number: None

PATIENT
  Age: 62 Year
  Sex: Male
  Weight: 101.9 kg

DRUGS (1)
  1. ATENOLOL. [Suspect]
     Active Substance: ATENOLOL
     Indication: HYPERTENSION
     Route: 048
     Dates: start: 20160211, end: 20160326

REACTIONS (6)
  - Transaminases increased [None]
  - Vomiting [None]
  - Hepatic enzyme increased [None]
  - Blood bilirubin increased [None]
  - Therapy cessation [None]
  - Abdominal pain [None]

NARRATIVE: CASE EVENT DATE: 20160326
